FAERS Safety Report 5408914-0 (Version None)
Quarter: 2007Q3

REPORT INFORMATION
  Report Type: 
  Country: None (occurrence: None)
  Receive Date: 20070808
  Receipt Date: 20070727
  Transmission Date: 20080115
  Serious: Yes (Other)
  Sender: FDA-Public Use
  Company Number: US-PFIZER INC-2007064067

PATIENT
  Age: 60 Year
  Sex: Female
  Weight: 113.63 kg

DRUGS (9)
  1. CHANTIX [Suspect]
     Indication: SMOKING CESSATION THERAPY
  2. WELLBUTRIN [Concomitant]
  3. PREVACID [Concomitant]
  4. TOPROL-XL [Concomitant]
  5. KLONOPIN [Concomitant]
  6. MECLIZINE [Concomitant]
  7. SEROQUEL [Concomitant]
  8. ALL OTHER THERAPEUTIC PRODUCTS [Concomitant]
  9. CILOSTAZOL [Concomitant]

REACTIONS (9)
  - ANOREXIA [None]
  - BLADDER PAIN [None]
  - CONSTIPATION [None]
  - CYSTITIS [None]
  - DYSPHAGIA [None]
  - EATING DISORDER [None]
  - INCREASED UPPER AIRWAY SECRETION [None]
  - RESIDUAL URINE [None]
  - SENSATION OF FOREIGN BODY [None]
